FAERS Safety Report 26106990 (Version 1)
Quarter: 2025Q4

REPORT INFORMATION
  Report Type: Spontaneous
  Country: US (occurrence: US)
  Receive Date: 20251201
  Receipt Date: 20251201
  Transmission Date: 20260117
  Serious: Yes (Other)
  Sender: BAYER HEALTHCARE PHARMACEUTICALS INC.
  Company Number: US-BAYER-2025A152852

PATIENT

DRUGS (2)
  1. KERENDIA [Suspect]
     Active Substance: FINERENONE
  2. KERENDIA [Suspect]
     Active Substance: FINERENONE

REACTIONS (2)
  - Blood creatinine increased [Not Recovered/Not Resolved]
  - Glomerular filtration rate decreased [Not Recovered/Not Resolved]
